FAERS Safety Report 23185205 (Version 2)
Quarter: 2024Q1

REPORT INFORMATION
  Report Type: Other
  Country: DE (occurrence: None)
  Receive Date: 20231115
  Receipt Date: 20240215
  Transmission Date: 20240410
  Serious: Yes (Hospitalization)
  Sender: FDA-Public Use
  Company Number: DE-ROCHE-3455785

PATIENT
  Age: 0 Year
  Sex: Male
  Weight: 5.65 kg

DRUGS (4)
  1. OCRELIZUMAB [Suspect]
     Active Substance: OCRELIZUMAB
     Indication: Product used for unknown indication
     Route: 064
  2. ARIPIPRAZOLE [Concomitant]
     Active Substance: ARIPIPRAZOLE
     Dates: start: 20211205, end: 20220222
  3. CLOTRIMAZOLE [Concomitant]
     Active Substance: CLOTRIMAZOLE
     Dates: start: 20220519, end: 20220521
  4. PROGESTERONE [Concomitant]
     Active Substance: PROGESTERONE
     Dates: start: 20221002, end: 20221130

REACTIONS (2)
  - Pyelonephritis [Recovered/Resolved]
  - Foetal exposure during pregnancy [Unknown]

NARRATIVE: CASE EVENT DATE: 20230801
